FAERS Safety Report 9772538 (Version 2)
Quarter: 2014Q1

REPORT INFORMATION
  Report Type: Spontaneous
  Country: US (occurrence: US)
  Receive Date: 20131219
  Receipt Date: 20140320
  Transmission Date: 20141002
  Serious: Yes (Hospitalization, Other)
  Sender: FDA-Public Use
  Company Number: US-B.I. PHARMACEUTICALS,INC./RIDGEFIELD-2013-BI-42620BP

PATIENT
  Sex: Female
  Weight: 72.57 kg

DRUGS (6)
  1. PRADAXA [Suspect]
     Indication: ATRIAL FIBRILLATION
     Route: 065
     Dates: start: 201110
  2. ASA 81 MG [Concomitant]
     Route: 065
  3. METOPULSE [Concomitant]
     Route: 065
  4. ZALOFT [Concomitant]
     Route: 065
  5. CALTRATE [Concomitant]
     Route: 065
  6. MULTIEVIT [Concomitant]
     Route: 065

REACTIONS (2)
  - Lower gastrointestinal haemorrhage [Unknown]
  - Ischaemic stroke [Unknown]
